FAERS Safety Report 4880135-X (Version None)
Quarter: 2006Q1

REPORT INFORMATION
  Report Type: 
  Country: None (occurrence: None)
  Receive Date: 20060113
  Receipt Date: 20050303
  Transmission Date: 20060701
  Serious: Yes (Death, Disabling)
  Sender: FDA-Public Use
  Company Number: PHNR2005AU00613

PATIENT
  Age: 57 Year
  Sex: Female

DRUGS (1)
  1. ZOMETA [Suspect]
     Indication: METASTASES TO BONE
     Dosage: 4 MG, UNK
     Dates: start: 20020101, end: 20050201

REACTIONS (10)
  - DISEASE RECURRENCE [None]
  - FALL [None]
  - INJURY [None]
  - MALIGNANT NEOPLASM PROGRESSION [None]
  - OSTEONECROSIS [None]
  - SINUS DISORDER [None]
  - SWELLING [None]
  - TOOTH EXTRACTION [None]
  - TRISMUS [None]
  - ULCER [None]
